FAERS Safety Report 4835637-9 (Version None)
Quarter: 2005Q4

REPORT INFORMATION
  Report Type: 
  Country: None (occurrence: None)
  Receive Date: 20051123
  Receipt Date: 20051116
  Transmission Date: 20060501
  Serious: Yes (Hospitalization)
  Sender: FDA-Public Use
  Company Number: 2005UW17487

PATIENT
  Age: 57 Year
  Sex: Female

DRUGS (1)
  1. CRESTOR [Suspect]
     Route: 048
     Dates: start: 20040330

REACTIONS (4)
  - CARDIAC FAILURE [None]
  - EJECTION FRACTION DECREASED [None]
  - RENAL FAILURE [None]
  - RHABDOMYOLYSIS [None]
